FAERS Safety Report 8004813-9 (Version None)
Quarter: 2011Q4

REPORT INFORMATION
  Report Type: 
  Country: None (occurrence: None)
  Receive Date: 20111223
  Receipt Date: 20111213
  Transmission Date: 20120403
  Serious: Yes (Hospitalization)
  Sender: FDA-Public Use
  Company Number: FR-BRISTOL-MYERS SQUIBB COMPANY-16295115

PATIENT
  Age: 66 Year
  Sex: Male

DRUGS (14)
  1. ETOPOSIDE [Suspect]
     Route: 042
     Dates: start: 20110715, end: 20110718
  2. CYTARABINE [Suspect]
     Route: 042
     Dates: start: 20110715, end: 20110718
  3. LOSARTAN POTASSIUM AND HYDROCHLOROTHIAZIDE [Concomitant]
  4. ZOVIRAX [Concomitant]
  5. ALKERAN [Suspect]
     Route: 042
     Dates: start: 20110719, end: 20110719
  6. XANAX [Concomitant]
  7. ACETAMINOPHEN [Concomitant]
  8. OXYCODONE HCL [Concomitant]
  9. CASPOFUNGIN ACETATE [Concomitant]
  10. CARMUSTINE [Suspect]
     Route: 042
     Dates: start: 20110715, end: 20110715
  11. NEXIUM [Concomitant]
  12. FUNGIZONE [Concomitant]
  13. PIPERACILLIN AND TAZOBACTAM [Concomitant]
  14. TARKA [Concomitant]

REACTIONS (2)
  - MELAENA [None]
  - VOMITING [None]
